FAERS Safety Report 19253423 (Version 1)
Quarter: 2021Q2

REPORT INFORMATION
  Report Type: Spontaneous
  Country: US (occurrence: US)
  Receive Date: 20210513
  Receipt Date: 20210513
  Transmission Date: 20210717
  Serious: Yes (Disabling)
  Sender: FDA-Public Use
  Company Number: None

PATIENT
  Age: 30 Year
  Sex: Male
  Weight: 60.75 kg

DRUGS (1)
  1. CIPROFLOXACIN. [Suspect]
     Active Substance: CIPROFLOXACIN
     Indication: RECTAL ULTRASOUND
     Dosage: ?          QUANTITY:1 TABLET(S);?
     Route: 048
     Dates: start: 20210120, end: 20210121

REACTIONS (6)
  - Tendon disorder [None]
  - Neck pain [None]
  - Abdominal pain [None]
  - Nervous system disorder [None]
  - Product complaint [None]
  - Sleep disorder [None]

NARRATIVE: CASE EVENT DATE: 20210120
